FAERS Safety Report 25896932 (Version 1)
Quarter: 2025Q4

REPORT INFORMATION
  Report Type: Spontaneous
  Country: US (occurrence: US)
  Receive Date: 20251008
  Receipt Date: 20251008
  Transmission Date: 20260117
  Serious: Yes (Other)
  Sender: SANOFI AVENTIS
  Company Number: US-SA-2025SA280536

PATIENT
  Age: 32 Year
  Sex: Male

DRUGS (5)
  1. DUPIXENT [Suspect]
     Active Substance: DUPILUMAB
     Indication: Nasal polyps
     Dosage: 300 MG, QOW
     Route: 058
     Dates: start: 202003
  2. DUPIXENT [Suspect]
     Active Substance: DUPILUMAB
     Dosage: 300 MG, QOW
     Route: 058
  3. AUGMENTIN [Concomitant]
     Active Substance: AMOXICILLIN\CLAVULANATE POTASSIUM
  4. CLARITHROMYCIN [Concomitant]
     Active Substance: CLARITHROMYCIN
  5. BUDESONIDE [Concomitant]
     Active Substance: BUDESONIDE
     Dosage: UNK UNK, QD

REACTIONS (30)
  - Cardiac operation [Unknown]
  - Allergic sinusitis [Unknown]
  - Chest pain [Unknown]
  - Brain fog [Unknown]
  - Post procedural infection [Unknown]
  - Klebsiella infection [Unknown]
  - Ear pain [Unknown]
  - Ear discomfort [Unknown]
  - Epistaxis [Unknown]
  - Exposure to noise [Unknown]
  - Dysphagia [Unknown]
  - Nasal turbinate hypertrophy [Unknown]
  - Upper-airway cough syndrome [Unknown]
  - Facial pain [Unknown]
  - Dyspepsia [Unknown]
  - Skin exfoliation [Recovering/Resolving]
  - Sinusitis [Unknown]
  - Headache [Unknown]
  - Injection site pain [Unknown]
  - Rash [Recovering/Resolving]
  - Nasal polyps [Unknown]
  - Anosmia [Unknown]
  - Paranasal sinus hypersecretion [Not Recovered/Not Resolved]
  - Condition aggravated [Unknown]
  - Nasal obstruction [Unknown]
  - Nasal oedema [Unknown]
  - Ageusia [Unknown]
  - Paranasal sinus discomfort [Not Recovered/Not Resolved]
  - Nasal congestion [Unknown]
  - Intentional dose omission [Unknown]

NARRATIVE: CASE EVENT DATE: 20250801
